FAERS Safety Report 7659014-0 (Version None)
Quarter: 2011Q3

REPORT INFORMATION
  Report Type: 
  Country: None (occurrence: None)
  Receive Date: 20110805
  Receipt Date: 20110722
  Transmission Date: 20111222
  Serious: Yes (Hospitalization)
  Sender: FDA-Public Use
  Company Number: US-ELI_LILLY_AND_COMPANY-US201003005833

PATIENT
  Sex: Female

DRUGS (9)
  1. FORTEO [Suspect]
     Indication: OSTEOPOROSIS
     Dosage: 20 UG, DAILY (1/D)
     Dates: start: 20091101
  2. FORTEO [Suspect]
     Dosage: 20 UG, DAILY (1/D)
  3. MULTI-VITAMIN [Concomitant]
  4. ATENOLOL [Concomitant]
     Dosage: 25 MG, QD
  5. ASPIRIN [Concomitant]
  6. FLEX-A-MIN [Concomitant]
     Dosage: 1 DF, QD
  7. FORTEO [Suspect]
     Dosage: 20 UG, QD
  8. VITAMIN D [Concomitant]
  9. DIOVAN [Concomitant]
     Dosage: 160 DF, QD

REACTIONS (17)
  - WEIGHT DECREASED [None]
  - ASTHENIA [None]
  - WHITE BLOOD CELL COUNT INCREASED [None]
  - NASOPHARYNGITIS [None]
  - DECREASED APPETITE [None]
  - RHINORRHOEA [None]
  - TRANSFUSION [None]
  - COUGH [None]
  - MUSCLE SPASMS [None]
  - DYSPNOEA [None]
  - NODULE [None]
  - HEADACHE [None]
  - DIZZINESS [None]
  - PNEUMONIA [None]
  - ANAEMIA [None]
  - ABDOMINAL DISCOMFORT [None]
  - FATIGUE [None]
